FAERS Safety Report 13007193 (Version 1)
Quarter: 2016Q4

REPORT INFORMATION
  Report Type: Not Available
  Country: GB (occurrence: GB)
  Receive Date: 20161207
  Receipt Date: 20161207
  Transmission Date: 20170207
  Serious: Yes (Hospitalization)
  Sender: FDA-Public Use
  Company Number: GB-PURDUE PHARMA-GBR-2016-0042122

PATIENT
  Age: 71 Year
  Sex: Male

DRUGS (10)
  1. CARBOCYSTEINE [Concomitant]
     Active Substance: CARBOCYSTEINE
  2. SERETIDE [Concomitant]
     Active Substance: FLUTICASONE PROPIONATE\SALMETEROL XINAFOATE
  3. GABAPENTIN. [Concomitant]
     Active Substance: GABAPENTIN
  4. SALBUTAMOL [Concomitant]
     Active Substance: ALBUTEROL
  5. QUININE BISULFATE [Concomitant]
     Active Substance: QUININE BISULFATE
  6. ENZALUTAMIDE [Concomitant]
     Active Substance: ENZALUTAMIDE
     Indication: HORMONE-REFRACTORY PROSTATE CANCER
     Dosage: 40 MG, 1/12 DAYS
     Route: 048
     Dates: start: 20160611, end: 20161108
  7. ALLOPURINOL. [Concomitant]
     Active Substance: ALLOPURINOL
  8. LISINOPRIL. [Concomitant]
     Active Substance: LISINOPRIL
  9. MORPHINE SULFATE. [Concomitant]
     Active Substance: MORPHINE SULFATE
  10. MST CONTINUS [Suspect]
     Active Substance: MORPHINE SULFATE
     Indication: BACK PAIN
     Route: 065

REACTIONS (2)
  - Toxicity to various agents [Unknown]
  - Acute kidney injury [Unknown]
